FAERS Safety Report 5630847-5 (Version None)
Quarter: 2008Q1

REPORT INFORMATION
  Report Type: 
  Country: None (occurrence: None)
  Receive Date: 20080219
  Receipt Date: 20080206
  Transmission Date: 20080703
  Serious: Yes (Hospitalization)
  Sender: FDA-Public Use
  Company Number: US-ELI_LILLY_AND_COMPANY-US200707000083

PATIENT
  Sex: Female
  Weight: 102.49 kg

DRUGS (1)
  1. LISPRO 25LIS75NPL [Suspect]
     Dosage: 34 IU, DAILY (1/D)
     Route: 058
     Dates: start: 20070601

REACTIONS (2)
  - CHEST DISCOMFORT [None]
  - DYSPNOEA [None]
